FAERS Safety Report 17404413 (Version 3)
Quarter: 2020Q1

REPORT INFORMATION
  Report Type: Report from Study
  Country: US (occurrence: US)
  Receive Date: 20200211
  Receipt Date: 20200227
  Transmission Date: 20200409
  Serious: Yes (Hospitalization)
  Sender: FDA-Public Use
  Company Number: US-ACTELION-A-NJ2020-201637

PATIENT
  Sex: Female
  Weight: 66.67 kg

DRUGS (3)
  1. COUMADIN [Concomitant]
     Active Substance: WARFARIN SODIUM
  2. UPTRAVI [Suspect]
     Active Substance: SELEXIPAG
     Indication: PULMONARY ARTERIAL HYPERTENSION
     Dosage: 800 MCG, BID
     Route: 048
  3. UPTRAVI [Suspect]
     Active Substance: SELEXIPAG
     Dosage: 200 MCG, BID
     Route: 048

REACTIONS (12)
  - Swelling [Unknown]
  - Blood pressure abnormal [Unknown]
  - Respiratory rate increased [Unknown]
  - Pain [Unknown]
  - Abdominal distension [Unknown]
  - General physical condition abnormal [Unknown]
  - Hospitalisation [Unknown]
  - Fluid overload [Unknown]
  - Skin discolouration [Unknown]
  - Decreased appetite [Unknown]
  - Abdominal pain upper [Unknown]
  - Oedema peripheral [Unknown]
